FAERS Safety Report 24608794 (Version 2)
Quarter: 2024Q4

REPORT INFORMATION
  Report Type: Spontaneous
  Country: US (occurrence: US)
  Receive Date: 20241112
  Receipt Date: 20241125
  Transmission Date: 20250115
  Serious: Yes (Other)
  Sender: BAYER HEALTHCARE PHARMACEUTICALS INC.
  Company Number: US-BAYER-2024A159529

PATIENT
  Age: 32 Year
  Sex: Female
  Weight: 61.224 kg

DRUGS (1)
  1. KYLEENA [Suspect]
     Active Substance: LEVONORGESTREL
     Indication: Intrauterine contraception
     Dosage: 17.5?G/DAY
     Route: 015
     Dates: start: 20240815, end: 20240926

REACTIONS (1)
  - Embedded device [Recovering/Resolving]

NARRATIVE: CASE EVENT DATE: 20240926
